FAERS Safety Report 5244505-2 (Version None)
Quarter: 2007Q1

REPORT INFORMATION
  Report Type: 
  Country: None (occurrence: None)
  Receive Date: 20070222
  Receipt Date: 20070220
  Transmission Date: 20070707
  Serious: Yes (Hospitalization)
  Sender: FDA-Public Use
  Company Number: US-BOEHRINGER INGELHEIM PHARMACEUTICALS, INC.-2007-BP-02418BP

PATIENT
  Age: 47 Year
  Sex: Male

DRUGS (4)
  1. APTIVUS/RITONAVIR CAPSULES [Suspect]
     Indication: HIV INFECTION
     Dosage: TPV 1000MG / RTV ? MG
     Route: 048
     Dates: start: 20060101
  2. TRUVADA [Concomitant]
  3. FUZEON [Concomitant]
  4. PREZISTA (DARUNAVIR) [Concomitant]

REACTIONS (1)
  - HEPATITIS B [None]
